FAERS Safety Report 7137291-2 (Version None)
Quarter: 2010Q4

REPORT INFORMATION
  Report Type: 
  Country: None (occurrence: None)
  Receive Date: 20101119
  Receipt Date: 20101112
  Transmission Date: 20110411
  Serious: Yes (Other)
  Sender: FDA-Public Use
  Company Number: DKLU1066445

PATIENT
  Age: 46 Year
  Sex: Male

DRUGS (10)
  1. SABRIL [Suspect]
     Indication: EPILEPSY
     Dosage: SEE IMAGE, ORAL
     Route: 048
     Dates: start: 19970101, end: 20000101
  2. SABRIL [Suspect]
     Indication: EPILEPSY
     Dosage: SEE IMAGE, ORAL
     Route: 048
     Dates: end: 20100301
  3. SABRIL [Suspect]
     Indication: EPILEPSY
     Dosage: SEE IMAGE, ORAL
     Route: 048
     Dates: start: 20100301, end: 20101028
  4. SABRIL [Suspect]
     Indication: EPILEPSY
     Dosage: SEE IMAGE, ORAL
     Route: 048
     Dates: start: 20101029, end: 20101101
  5. SABRIL [Suspect]
     Indication: EPILEPSY
     Dosage: SEE IMAGE, ORAL
     Route: 048
     Dates: start: 20101101
  6. TEGRETOL [Concomitant]
  7. FELBATOL [Concomitant]
  8. LAMICTAL [Concomitant]
  9. DILANTIN [Concomitant]
  10. NEURONTIN [Concomitant]

REACTIONS (3)
  - DISEASE PROGRESSION [None]
  - HEMIANOPIA [None]
  - VISUAL FIELD DEFECT [None]
